FAERS Safety Report 8304707-5 (Version None)
Quarter: 2012Q2

REPORT INFORMATION
  Report Type: 
  Country: None (occurrence: None)
  Receive Date: 20120423
  Receipt Date: 20120418
  Transmission Date: 20120825
  Serious: Yes (Life-Threatening, Hospitalization, Other)
  Sender: FDA-Public Use
  Company Number: CA-TEVA-333648USA

PATIENT
  Age: 63 Year
  Sex: Female

DRUGS (2)
  1. NIFEDIPINE [Concomitant]
     Dosage: 20 MG DIE
  2. ATENOLOL [Suspect]
     Indication: HYPERTENSION
     Route: 048

REACTIONS (2)
  - ANAPHYLACTIC REACTION [None]
  - DYSPNOEA [None]
